FAERS Safety Report 20026253 (Version 1)
Quarter: 2021Q4

REPORT INFORMATION
  Report Type: Spontaneous
  Country: US (occurrence: US)
  Receive Date: 20211102
  Receipt Date: 20211102
  Transmission Date: 20220303
  Serious: No
  Sender: FDA-Public Use
  Company Number: US-GALDERMA-US2021017509

PATIENT

DRUGS (5)
  1. PROACTIV MD ADAPALENE ACNE TREATMENT [Suspect]
     Active Substance: ADAPALENE
     Indication: Product used for unknown indication
     Dosage: 1 DOSAGE FORM, QD
     Route: 061
     Dates: start: 202106, end: 202106
  2. Proactiv MD Ultra Gentle Cleanser [Concomitant]
     Indication: Product used for unknown indication
     Dosage: 1 DOSAGE FORM, QD
     Route: 061
     Dates: start: 202106, end: 202106
  3. Proactiv MD Ultra Hydrating Moisturizer [Concomitant]
     Indication: Product used for unknown indication
     Dosage: 1 DOSAGE FORM, QD
     Route: 061
     Dates: start: 202106, end: 202106
  4. Proactiv Post Acne Scar Gel [Concomitant]
     Indication: Product used for unknown indication
     Dosage: 1 DOSAGE FORM, QD
     Route: 061
     Dates: start: 202106, end: 202106
  5. COSMETICS [Concomitant]
     Active Substance: COSMETICS
     Indication: Product used for unknown indication
     Dosage: 1 DOSAGE FORM, QD
     Route: 061
     Dates: start: 202106, end: 202106

REACTIONS (5)
  - Hypersensitivity [Recovered/Resolved]
  - Skin exfoliation [Recovered/Resolved]
  - Rash macular [Recovered/Resolved]
  - Chemical burn of skin [Recovered/Resolved]
  - Scar [Recovered/Resolved]

NARRATIVE: CASE EVENT DATE: 20210601
